FAERS Safety Report 10211084 (Version 1)
Quarter: 2014Q2

REPORT INFORMATION
  Report Type: Spontaneous
  Country: US (occurrence: None)
  Receive Date: 20140530
  Receipt Date: 20140530
  Transmission Date: 20141212
  Serious: Yes (Disabling, Other)
  Sender: FDA-Public Use
  Company Number: None

PATIENT
  Age: 57 Year
  Sex: Female
  Weight: 50.8 kg

DRUGS (3)
  1. PROLIA [Suspect]
     Indication: OSTEOPOROSIS
     Dosage: 1 INJECTION  6 MONTHS  INJECTION IN DOCTOR^S OFFICE
     Dates: start: 20130731, end: 20140131
  2. CALCIUM CITRATE [Concomitant]
  3. VIT D [Concomitant]

REACTIONS (37)
  - Myalgia [None]
  - Middle insomnia [None]
  - Back pain [None]
  - Pain in extremity [None]
  - Burning sensation [None]
  - Pain in extremity [None]
  - Pain in extremity [None]
  - Pain in extremity [None]
  - Feeling abnormal [None]
  - Discomfort [None]
  - Muscle spasms [None]
  - Myalgia [None]
  - Gait disturbance [None]
  - Hypoaesthesia [None]
  - Paraesthesia [None]
  - Grip strength decreased [None]
  - Joint range of motion decreased [None]
  - Groin pain [None]
  - Hyperaesthesia [None]
  - Skin burning sensation [None]
  - Sexual relationship change [None]
  - Fatigue [None]
  - Influenza like illness [None]
  - Impaired work ability [None]
  - Social problem [None]
  - Tinnitus [None]
  - Blood urine present [None]
  - Confusional state [None]
  - Swollen tongue [None]
  - Dysphagia [None]
  - Palpitations [None]
  - Exercise tolerance decreased [None]
  - Pain [None]
  - Hypoaesthesia [None]
  - Hyperaesthesia [None]
  - Insomnia [None]
  - Economic problem [None]
